FAERS Safety Report 13523306 (Version 1)
Quarter: 2017Q2

REPORT INFORMATION
  Report Type: Spontaneous
  Country: US (occurrence: US)
  Receive Date: 20170508
  Receipt Date: 20170508
  Transmission Date: 20170830
  Serious: No
  Sender: FDA-Public Use
  Company Number: US-VIFOR (INTERNATIONAL) INC.-VIT-2017-02390

PATIENT
  Sex: Female

DRUGS (17)
  1. ATORVASTATIN CALCIUM. [Concomitant]
     Active Substance: ATORVASTATIN CALCIUM
  2. ISTALOL [Concomitant]
     Active Substance: TIMOLOL MALEATE
  3. AMLODIPINE BESILATE [Concomitant]
     Active Substance: AMLODIPINE BESYLATE
  4. ALPHAGAN P [Concomitant]
     Active Substance: BRIMONIDINE TARTRATE
  5. LISINOPRIL. [Concomitant]
     Active Substance: LISINOPRIL
  6. CALCIUM CARBONATE. [Concomitant]
     Active Substance: CALCIUM CARBONATE
  7. VELTASSA [Suspect]
     Active Substance: PATIROMER
     Indication: HYPERKALAEMIA
     Route: 048
     Dates: start: 20170124
  8. LEVOXYL [Concomitant]
     Active Substance: LEVOTHYROXINE SODIUM
  9. LATANOPROST. [Concomitant]
     Active Substance: LATANOPROST
  10. GLUCOSAMINE [Concomitant]
     Active Substance: GLUCOSAMINE
  11. OCUVITE [Concomitant]
     Active Substance: VITAMINS
  12. LASIX [Concomitant]
     Active Substance: FUROSEMIDE
  13. FISH OIL [Concomitant]
     Active Substance: FISH OIL
  14. ACETYLSALICYLIC ACID [Concomitant]
     Active Substance: ASPIRIN
  15. ALENDRONATE SODIUM. [Concomitant]
     Active Substance: ALENDRONATE SODIUM
  16. CHONDR [Concomitant]
  17. CARVEDILOL. [Concomitant]
     Active Substance: CARVEDILOL

REACTIONS (2)
  - Malaise [Unknown]
  - Diarrhoea [Unknown]

NARRATIVE: CASE EVENT DATE: 2017
